FAERS Safety Report 15340491 (Version 3)
Quarter: 2019Q1

REPORT INFORMATION
  Report Type: Spontaneous
  Country: JP (occurrence: JP)
  Receive Date: 20180831
  Receipt Date: 20190118
  Transmission Date: 20190417
  Serious: Yes (Life-Threatening, Hospitalization, Other)
  Sender: FDA-Public Use
  Company Number: JP-009507513-1808JPN002216J

PATIENT
  Age: 82 Year
  Sex: Male
  Weight: 53 kg

DRUGS (4)
  1. KEYTRUDA [Suspect]
     Active Substance: PEMBROLIZUMAB
     Indication: TRANSITIONAL CELL CARCINOMA
     Dosage: 200 MILLIGRAM, Q3W
     Route: 041
     Dates: start: 20180627
  2. BIO-THREE [Concomitant]
     Active Substance: HERBALS
     Indication: DYSCHEZIA
     Dosage: 6 DOSAGE FORM, TID, AFTER MEAL
     Route: 048
     Dates: start: 20180629, end: 201812
  3. ALINAMIN F [Concomitant]
     Active Substance: FURSULTIAMINE HYDROCHLORIDE
     Indication: DIZZINESS
     Dosage: 3 GRAM, TID,AFTER MEAL
     Route: 048
     Dates: start: 20171003, end: 201812
  4. LINZESS [Concomitant]
     Active Substance: LINACLOTIDE
     Indication: DYSCHEZIA
     Dosage: 0.25 MILLIGRAM, QD,BEFORE BREAKFAST
     Route: 048
     Dates: start: 20180629, end: 20180904

REACTIONS (3)
  - Urinary tract infection [Recovering/Resolving]
  - Pyelonephritis [Recovering/Resolving]
  - Bacteraemia [Recovered/Resolved]

NARRATIVE: CASE EVENT DATE: 20180808
